FAERS Safety Report 11747701 (Version 1)
Quarter: 2015Q4

REPORT INFORMATION
  Report Type: Other
  Country: US (occurrence: US)
  Receive Date: 20151117
  Receipt Date: 20151117
  Transmission Date: 20160304
  Serious: Yes (Death)
  Sender: FDA-Public Use
  Company Number: US-FRI-1000080905

PATIENT
  Age: 31 Year
  Sex: Male

DRUGS (2)
  1. CEFTAROLINE FOSAMIL [Suspect]
     Active Substance: CEFTAROLINE FOSAMIL
  2. DAPTOMYCIN. [Concomitant]
     Active Substance: DAPTOMYCIN

REACTIONS (2)
  - Cardiopulmonary failure [Fatal]
  - Septic shock [Fatal]
